APPROVED DRUG PRODUCT: TRIMETHOPRIM
Active Ingredient: TRIMETHOPRIM
Strength: 200MG **Federal Register determination that product was not discontinued or withdrawn for safety or effectiveness reasons**
Dosage Form/Route: TABLET;ORAL
Application: A071259 | Product #001
Applicant: TEVA PHARMACEUTICALS USA INC
Approved: Jun 18, 1987 | RLD: No | RS: No | Type: DISCN